FAERS Safety Report 4583533-7 (Version None)
Quarter: 2005Q1

REPORT INFORMATION
  Report Type: 
  Country: None (occurrence: None)
  Receive Date: 20050211
  Receipt Date: 20050127
  Transmission Date: 20050727
  Serious: Yes (Death)
  Sender: FDA-Public Use
  Company Number: 8008829

PATIENT

DRUGS (6)
  1. KEPPRA [Suspect]
     Indication: EPILEPSY
     Dosage: TRP
     Dates: start: 20041220, end: 20050114
  2. RIVOTRIL [Suspect]
     Indication: EPILEPSY
     Dosage: 1 DF 1/D TRP
     Dates: start: 20040730, end: 20050101
  3. FOLIC ACID [Suspect]
     Dosage: NI  TRP
     Dates: end: 20050114
  4. TEGRETOL [Suspect]
     Indication: EPILEPSY
     Dosage: 1000 MG/ D TRP
     Dates: start: 20040730, end: 20050114
  5. DI-HYDAN [Suspect]
     Indication: EPILEPSY
     Dosage: 300 MG /D TRP
     Dates: start: 20040730, end: 20050101
  6. PRODILANTIN [Concomitant]

REACTIONS (9)
  - CONGENITAL NOSE MALFORMATION [None]
  - DRUG EXPOSURE DURING PREGNANCY [None]
  - FACIAL DYSMORPHISM [None]
  - FOETAL MALFORMATION [None]
  - GRAND MAL CONVULSION [None]
  - INTRA-UTERINE DEATH [None]
  - PETIT MAL EPILEPSY [None]
  - PREGNANCY [None]
  - TREATMENT NONCOMPLIANCE [None]
